FAERS Safety Report 8828663 (Version 5)
Quarter: 2013Q2

REPORT INFORMATION
  Report Type: Report from Study
  Country: IE (occurrence: IE)
  Receive Date: 20121005
  Receipt Date: 20130610
  Transmission Date: 20140414
  Serious: Yes (Other)
  Sender: FDA-Public Use
  Company Number: IE-AMGEN-IRLCT2012060525

PATIENT
  Age: 56 Year
  Sex: Male
  Weight: 88 kg

DRUGS (14)
  1. ETANERCEPT [Suspect]
     Indication: PSORIASIS
     Dosage: 50 MG, 2X/WEEK
     Route: 065
     Dates: start: 200411, end: 200608
  2. ETANERCEPT [Suspect]
     Indication: PSORIATIC ARTHROPATHY
     Dosage: UNK
     Route: 065
  3. METHOTREXATE SODIUM [Concomitant]
     Indication: PSORIATIC ARTHROPATHY
     Dosage: UNK, QWK
     Dates: start: 200110, end: 200911
  4. METHOTREXATE SODIUM [Concomitant]
     Indication: PSORIASIS
     Dosage: UNK
  5. NEORAL [Concomitant]
     Indication: PSORIASIS
     Dosage: 2.5 MG/KG, UNK
     Dates: start: 200308, end: 200506
  6. NEORAL [Concomitant]
     Indication: PSORIATIC ARTHROPATHY
     Dosage: UNK
  7. HUMIRA [Concomitant]
     Indication: PSORIASIS
     Dosage: 40 MG, EVERY 2 WEEKS
     Route: 058
     Dates: start: 20061107, end: 20110526
  8. HUMIRA [Concomitant]
     Indication: PSORIATIC ARTHROPATHY
     Dosage: UNK
  9. COZAAR [Concomitant]
     Indication: HYPERTENSION
     Dosage: UNK
  10. CRESTOR [Concomitant]
     Indication: HYPERLIPIDAEMIA
     Dosage: UNK
  11. GLUCOPHAGE [Concomitant]
     Indication: DIABETES MELLITUS
     Dosage: UNK
     Dates: start: 20030904, end: 20100101
  12. CIPRAMIL                           /00582602/ [Concomitant]
     Indication: DEPRESSION
     Dosage: 20 MG, UNK
  13. AVANDAMET [Concomitant]
     Indication: TYPE 2 DIABETES MELLITUS
     Dosage: 2 DF, 1X/DAY
     Dates: start: 20060101, end: 20100101
  14. EMCOR [Concomitant]
     Indication: HYPERTENSION
     Dosage: 10 MG, UNK

REACTIONS (1)
  - B-cell lymphoma [Recovered/Resolved]
